FAERS Safety Report 6179582-8 (Version None)
Quarter: 2009Q2

REPORT INFORMATION
  Report Type: 
  Country: None (occurrence: None)
  Receive Date: 20090505
  Receipt Date: 20090424
  Transmission Date: 20091009
  Serious: Yes (Hospitalization)
  Sender: FDA-Public Use
  Company Number: ES-ELI_LILLY_AND_COMPANY-ES200904006345

PATIENT
  Age: 78 Year
  Sex: Female

DRUGS (3)
  1. FORTEO [Suspect]
     Indication: OSTEOPOROSIS
     Dosage: 20 UG, UNK
     Dates: start: 20081201, end: 20090401
  2. CORTISONE [Concomitant]
     Indication: RHEUMATOID ARTHRITIS
  3. MORPHINE [Concomitant]
     Indication: PAIN

REACTIONS (3)
  - ABDOMINAL DISCOMFORT [None]
  - INTESTINAL OBSTRUCTION [None]
  - VOMITING [None]
